FAERS Safety Report 19420946 (Version 3)
Quarter: 2021Q3

REPORT INFORMATION
  Report Type: Report from Study
  Country: CO (occurrence: CO)
  Receive Date: 20210615
  Receipt Date: 20210804
  Transmission Date: 20211014
  Serious: Yes (Life-Threatening, Hospitalization, Other)
  Sender: FDA-Public Use
  Company Number: NVSC2021CO132812

PATIENT
  Age: 35 Year
  Sex: Male
  Weight: 75 kg

DRUGS (10)
  1. ERYTHROPOIETIN [Concomitant]
     Active Substance: ERYTHROPOIETIN
     Indication: APLASTIC ANAEMIA
     Dosage: 30000 UL/0.6 ML QW
     Route: 058
     Dates: start: 202103
  2. CICLOSPORIN [Suspect]
     Active Substance: CYCLOSPORINE
     Indication: APLASTIC ANAEMIA
     Dosage: 100 MG, BID (EVERY 12 HOURS)
     Route: 048
     Dates: start: 202103
  3. REVOLADE [Suspect]
     Active Substance: ELTROMBOPAG OLAMINE
     Dosage: 150 MG DOSE (25 MG TABLET)
     Route: 048
     Dates: start: 202103
  4. TRIMETHOPRIM. [Concomitant]
     Active Substance: TRIMETHOPRIM
     Indication: APLASTIC ANAEMIA
     Dosage: UNK UNK, QD (ONCE DAILY/MONDAY, WEDNESDAY AND FRIDAYS)
     Route: 048
     Dates: start: 202103
  5. OMEPRAZOLE. [Concomitant]
     Active Substance: OMEPRAZOLE
     Indication: GASTRITIS
     Dosage: QD
     Route: 048
     Dates: start: 202103
  6. REVOLADE [Suspect]
     Active Substance: ELTROMBOPAG OLAMINE
     Dosage: 75 MG (25 MG TABLET), QD
     Route: 048
  7. REVOLADE [Suspect]
     Active Substance: ELTROMBOPAG OLAMINE
     Dosage: 100 MG, QD (24 HOURS)
     Route: 048
  8. ACYCLOVIR. [Concomitant]
     Active Substance: ACYCLOVIR
     Indication: APLASTIC ANAEMIA
     Dosage: 200 MG, BID (EVERY 12 HOURS)
     Route: 048
     Dates: start: 202103
  9. FOLIC ACID. [Concomitant]
     Active Substance: FOLIC ACID
     Indication: APLASTIC ANAEMIA
     Dosage: 5 MG, QD
     Route: 048
     Dates: start: 202103
  10. REVOLADE [Suspect]
     Active Substance: ELTROMBOPAG OLAMINE
     Indication: APLASTIC ANAEMIA
     Dosage: 75 MG, QD
     Route: 048
     Dates: start: 202005

REACTIONS (4)
  - Product dose omission issue [Unknown]
  - Platelet count decreased [Unknown]
  - Headache [Recovered/Resolved]
  - Product use in unapproved indication [Unknown]

NARRATIVE: CASE EVENT DATE: 202103
